FAERS Safety Report 10136364 (Version 3)
Quarter: 2014Q2

REPORT INFORMATION
  Report Type: Spontaneous
  Country: US (occurrence: None)
  Receive Date: 20140425
  Receipt Date: 20140509
  Transmission Date: 20141212
  Serious: Yes (Hospitalization, Other)
  Sender: FDA-Public Use
  Company Number: UTC-047511

PATIENT
  Age: 52 Year
  Sex: Female
  Weight: 83.63 kg

DRUGS (2)
  1. REMODULIN [Suspect]
     Indication: COR PULMONALE CHRONIC
     Dosage: 144UG/KG (0.1 UG/KG, 1 IN 1 MIN), INTRAVENOUS DRIP
     Route: 041
     Dates: start: 20090128
  2. REMODULIN [Suspect]
     Indication: SYSTEMIC SCLEROSIS
     Dosage: 144UG/KG (0.1 UG/KG, 1 IN 1 MIN), INTRAVENOUS DRIP
     Route: 041
     Dates: start: 20090128

REACTIONS (6)
  - Convulsion [None]
  - Altered state of consciousness [None]
  - Hypoglycaemia [None]
  - Meningitis [None]
  - Loss of consciousness [None]
  - Infection [None]
